FAERS Safety Report 15499220 (Version 1)
Quarter: 2018Q4

REPORT INFORMATION
  Report Type: Spontaneous
  Country: US (occurrence: US)
  Receive Date: 20181007
  Receipt Date: 20181007
  Transmission Date: 20190205
  Serious: Yes (Life-Threatening, Other)
  Sender: FDA-Public Use
  Company Number: None

PATIENT
  Age: 34 Year
  Sex: Female
  Weight: 56.25 kg

DRUGS (5)
  1. TYLENOL [Concomitant]
     Active Substance: ACETAMINOPHEN
  2. TIZANIDINE HYDROCHLORIDE. [Suspect]
     Active Substance: TIZANIDINE HYDROCHLORIDE
     Indication: TENSION HEADACHE
     Dosage: ?          QUANTITY:1 TABLET(S);?
     Route: 048
     Dates: start: 20180609, end: 20180612
  3. IBUPROFEN. [Concomitant]
     Active Substance: IBUPROFEN
  4. VALERIAN/CHAMOMILE [Concomitant]
  5. NAPROXEN. [Concomitant]
     Active Substance: NAPROXEN

REACTIONS (7)
  - Hypertension [None]
  - Palpitations [None]
  - Tachycardia [None]
  - Hypertonia [None]
  - Muscle spasms [None]
  - Seizure [None]
  - Muscle tightness [None]
